FAERS Safety Report 10581348 (Version 2)
Quarter: 2014Q4

REPORT INFORMATION
  Report Type: Report from Study
  Country: AU (occurrence: AU)
  Receive Date: 20141113
  Receipt Date: 20141113
  Transmission Date: 20150529
  Serious: Yes (Death, Other)
  Sender: FDA-Public Use
  Company Number: AU-INCYTE CORPORATION-2014IN002994

PATIENT
  Age: 74 Year
  Sex: Male

DRUGS (1)
  1. JAKAFI [Suspect]
     Active Substance: RUXOLITINIB
     Indication: MYELOFIBROSIS
     Dosage: 20 MG, BID
     Route: 048
     Dates: start: 201305, end: 20140925

REACTIONS (22)
  - Platelet count decreased [Fatal]
  - Blood bilirubin increased [Unknown]
  - C-reactive protein increased [Unknown]
  - Brain natriuretic peptide increased [Unknown]
  - Neutrophil count increased [Unknown]
  - Dyspnoea [Unknown]
  - Pneumonitis [Fatal]
  - Pneumonia [Fatal]
  - Infection [Unknown]
  - Cough [Unknown]
  - Blood alkaline phosphatase increased [Unknown]
  - Anaemia [Unknown]
  - Blast cell count increased [Unknown]
  - Pulmonary sepsis [Fatal]
  - Cardiac failure [Unknown]
  - Pyrexia [Unknown]
  - Myelofibrosis [Fatal]
  - Splenomegaly [Unknown]
  - Leukocytosis [Unknown]
  - Acute kidney injury [Fatal]
  - Aspartate aminotransferase increased [Unknown]
  - Monocyte count increased [Unknown]

NARRATIVE: CASE EVENT DATE: 20140925
